FAERS Safety Report 12167345 (Version 1)
Quarter: 2016Q1

REPORT INFORMATION
  Report Type: Spontaneous
  Country: US (occurrence: US)
  Receive Date: 20160310
  Receipt Date: 20160310
  Transmission Date: 20160526
  Serious: Yes (Other)
  Sender: FDA-Public Use
  Company Number: US-GLAXOSMITHKLINE-US2016033912

PATIENT
  Sex: Female

DRUGS (11)
  1. ACTONEL [Suspect]
     Active Substance: RISEDRONATE SODIUM
     Indication: ARTHRITIS
     Route: 048
  2. TRAMADOL. [Concomitant]
     Active Substance: TRAMADOL
  3. ADVAIR DISKUS [Suspect]
     Active Substance: FLUTICASONE PROPIONATE\SALMETEROL XINAFOATE
     Indication: ASTHMA
     Dosage: 1 PUFF(S), BID (250/50)
     Route: 055
  4. CARAFATE [Concomitant]
     Active Substance: SUCRALFATE
  5. ADVAIR DISKUS [Suspect]
     Active Substance: FLUTICASONE PROPIONATE\SALMETEROL XINAFOATE
     Dosage: 1 PUFF(S), QD (250/50)
     Route: 055
  6. VENTOLIN HFA [Suspect]
     Active Substance: ALBUTEROL SULFATE
     Indication: ASTHMA
     Dosage: UNK
     Route: 055
  7. NORVASC [Concomitant]
     Active Substance: AMLODIPINE BESYLATE
  8. HYDROCORTISONE INJECTION [Concomitant]
  9. BENTYL [Concomitant]
     Active Substance: DICYCLOMINE HYDROCHLORIDE
  10. XANAX [Concomitant]
     Active Substance: ALPRAZOLAM
  11. ZOFRAN [Concomitant]
     Active Substance: ONDANSETRON HYDROCHLORIDE

REACTIONS (17)
  - Arthritis [Unknown]
  - Tooth fracture [Unknown]
  - Tooth disorder [Unknown]
  - Asthma [Unknown]
  - Intentional underdose [Unknown]
  - Incorrect product storage [Unknown]
  - Dupuytren^s contracture operation [Unknown]
  - Tooth extraction [Unknown]
  - Weight decreased [Unknown]
  - Aptyalism [Unknown]
  - Dry mouth [Unknown]
  - Cough [Unknown]
  - Nausea [Unknown]
  - Bone disorder [Unknown]
  - Tooth discolouration [Unknown]
  - Decreased appetite [Unknown]
  - Dupuytren^s contracture [Not Recovered/Not Resolved]
